FAERS Safety Report 9892774 (Version 2)
Quarter: 2014Q1

REPORT INFORMATION
  Report Type: Report from Study
  Country: US (occurrence: US)
  Receive Date: 20140212
  Receipt Date: 20140218
  Transmission Date: 20141002
  Serious: Yes (Death)
  Sender: FDA-Public Use
  Company Number: US-ROCHE-1348876

PATIENT
  Age: 53 Year
  Sex: Female
  Weight: 69.92 kg

DRUGS (3)
  1. HERCEPTIN [Suspect]
     Indication: BREAST CANCER
     Dosage: MOST RECENT DOSES ON 05/JUN/2013, 26/JUN/2013;
     Route: 065
     Dates: start: 20130508, end: 20131211
  2. CARBOPLATIN [Concomitant]
     Indication: BREAST CANCER
     Route: 042
     Dates: start: 20130508, end: 20131009
  3. DOCETAXEL [Concomitant]
     Indication: BREAST CANCER
     Route: 042
     Dates: start: 20130508, end: 20131009

REACTIONS (1)
  - Breast cancer [Fatal]
